FAERS Safety Report 10054958 (Version 1)
Quarter: 2014Q2

REPORT INFORMATION
  Report Type: Spontaneous
  Country: US (occurrence: US)
  Receive Date: 20140402
  Receipt Date: 20140402
  Transmission Date: 20141212
  Serious: No
  Sender: FDA-Public Use
  Company Number: US-009507513-1404USA000582

PATIENT
  Sex: Female

DRUGS (3)
  1. REBETOL [Suspect]
     Indication: HEPATITIS C
     Dosage: 1000 MG, BID
     Route: 048
     Dates: start: 20140330
  2. XANAX [Concomitant]
     Indication: ANXIETY
  3. SOVALDI [Concomitant]

REACTIONS (2)
  - Feeling abnormal [Unknown]
  - Mental disorder [Unknown]
